FAERS Safety Report 24267229 (Version 2)
Quarter: 2024Q3

REPORT INFORMATION
  Report Type: Spontaneous
  Country: DE (occurrence: DE)
  Receive Date: 20240830
  Receipt Date: 20240924
  Transmission Date: 20241017
  Serious: Yes (Other)
  Sender: ACCORD
  Company Number: DE-Accord-443587

PATIENT
  Age: 67 Year
  Sex: Male

DRUGS (9)
  1. LEVETIRACETAM [Suspect]
     Active Substance: LEVETIRACETAM
     Indication: Seizure prophylaxis
  2. FENTANYL [Suspect]
     Active Substance: FENTANYL\FENTANYL CITRATE
     Indication: Pain
  3. IBUPROFEN [Suspect]
     Active Substance: IBUPROFEN
     Indication: Pain
  4. TRAMADOL [Suspect]
     Active Substance: TRAMADOL\TRAMADOL HYDROCHLORIDE
     Indication: Pain
  5. TESTOSTERONE [Concomitant]
     Active Substance: TESTOSTERONE
     Route: 062
  6. LEVOTHYROXINE [Concomitant]
     Active Substance: LEVOTHYROXINE\LEVOTHYROXINE SODIUM
     Dosage: NASAL APPLICATOR
     Route: 045
  7. HYDROCORTISONE [Concomitant]
     Active Substance: HYDROCORTISONE\HYDROCORTISONE ACETATE
     Dosage: NASAL APPLICATOR
     Route: 045
  8. MINIRIN [Concomitant]
     Active Substance: DESMOPRESSIN ACETATE
     Dosage: ONCE PER DAY
     Route: 045
  9. MINIRIN [Concomitant]
     Active Substance: DESMOPRESSIN ACETATE
     Dosage: NASAL APPLICATOR
     Route: 045

REACTIONS (2)
  - Hyponatraemia [Recovered/Resolved]
  - Epilepsy [Recovered/Resolved]
